FAERS Safety Report 19130667 (Version 1)
Quarter: 2021Q2

REPORT INFORMATION
  Report Type: Spontaneous
  Country: GB (occurrence: GB)
  Receive Date: 20210413
  Receipt Date: 20210413
  Transmission Date: 20210717
  Serious: Yes (Life-Threatening)
  Sender: FDA-Public Use
  Company Number: GB-MYLANLABS-2021M1021961

PATIENT
  Age: 22 Year
  Sex: Female
  Weight: 41 kg

DRUGS (2)
  1. MEROPENEM. [Suspect]
     Active Substance: MEROPENEM
     Indication: SPINAL ROD REMOVAL
     Dosage: 1 GRAM
     Route: 042
     Dates: start: 20210409, end: 20210409
  2. LINEZOLID. [Suspect]
     Active Substance: LINEZOLID
     Indication: SPINAL ROD REMOVAL
     Dosage: 600 MILLIGRAM
     Route: 042
     Dates: start: 20210409, end: 20210409

REACTIONS (3)
  - Hypotension [Recovering/Resolving]
  - Anaphylactic reaction [Not Recovered/Not Resolved]
  - Sinus tachycardia [Recovering/Resolving]
